FAERS Safety Report 6896958-1 (Version None)
Quarter: 2010Q3

REPORT INFORMATION
  Report Type: 
  Country: None (occurrence: None)
  Receive Date: 20100802
  Receipt Date: 20070315
  Transmission Date: 20110219
  Serious: No
  Sender: FDA-Public Use
  Company Number: US-PFIZER INC-2007020724

PATIENT
  Sex: Male
  Weight: 93.9 kg

DRUGS (1)
  1. LYRICA [Suspect]
     Indication: HERPES ZOSTER
     Dates: start: 20061001, end: 20061001

REACTIONS (2)
  - DIZZINESS [None]
  - SOMNOLENCE [None]
